FAERS Safety Report 6881432-9 (Version None)
Quarter: 2010Q3

REPORT INFORMATION
  Report Type: 
  Country: None (occurrence: None)
  Receive Date: 20100728
  Receipt Date: 20100728
  Transmission Date: 20110219
  Serious: Yes (Other)
  Sender: FDA-Public Use
  Company Number: None

PATIENT
  Age: 6 Year
  Sex: Male
  Weight: 22.6799 kg

DRUGS (2)
  1. CONCERTA [Suspect]
     Indication: DISTURBANCE IN ATTENTION
     Dosage: 1 CAPLET DAILY PO
     Route: 048
     Dates: start: 20100401, end: 20100723
  2. CONCERTA [Suspect]
     Indication: IMPULSIVE BEHAVIOUR
     Dosage: 1 CAPLET DAILY PO
     Route: 048
     Dates: start: 20100401, end: 20100723

REACTIONS (4)
  - EAR INFECTION [None]
  - RHINORRHOEA [None]
  - TIC [None]
  - TONGUE DISORDER [None]
